FAERS Safety Report 11147364 (Version 2)
Quarter: 2015Q2

REPORT INFORMATION
  Report Type: Spontaneous
  Country: CZ (occurrence: CZ)
  Receive Date: 20150528
  Receipt Date: 20150608
  Transmission Date: 20150821
  Serious: Yes (Hospitalization)
  Sender: FDA-Public Use
  Company Number: CZ-ROCHE-1582871

PATIENT
  Age: 58 Year
  Sex: Female

DRUGS (3)
  1. DEXAMETHASONE. [Concomitant]
     Active Substance: DEXAMETHASONE
     Route: 065
  2. KADCYLA [Suspect]
     Active Substance: ADO-TRASTUZUMAB EMTANSINE
     Indication: BREAST CANCER
     Dosage: 3.60 MG/KG IN 250 ML PHYSIOLOGICAL SALINE
     Route: 042
     Dates: start: 20150323, end: 20150504
  3. DEXAMETHASONE. [Concomitant]
     Active Substance: DEXAMETHASONE
     Indication: HYPERSENSITIVITY
     Dosage: INFUSION IN 100 ML PHYSIOLOGICAL SALINE 1/1
     Route: 042
     Dates: start: 20150323, end: 20150323

REACTIONS (11)
  - Microangiopathy [Not Recovered/Not Resolved]
  - Arthralgia [Recovered/Resolved]
  - Thrombocytopenia [Recovered/Resolved]
  - Cyanosis [Not Recovered/Not Resolved]
  - Pleural effusion [Recovering/Resolving]
  - Interstitial lung disease [Recovering/Resolving]
  - Oedema peripheral [Recovering/Resolving]
  - Dyspnoea [Recovered/Resolved]
  - Proteinuria [Recovered/Resolved]
  - Lividity [Recovering/Resolving]
  - Pulmonary oedema [Recovering/Resolving]

NARRATIVE: CASE EVENT DATE: 20150420
